FAERS Safety Report 8535745-5 (Version None)
Quarter: 2012Q2

REPORT INFORMATION
  Report Type: 
  Country: None (occurrence: None)
  Receive Date: 20120412
  Receipt Date: 20100719
  Transmission Date: 20120825
  Serious: Yes (Other)
  Sender: FDA-Public Use
  Company Number: PHEH2009US17157

PATIENT
  Sex: Female

DRUGS (2)
  1. ESTRADIOL AND NORETHINDRONE ACETATE [Suspect]
  2. PREMPRO [Suspect]

REACTIONS (6)
  - SURGERY [None]
  - BREAST CANCER [None]
  - BREAST CYST [None]
  - BREAST LUMP REMOVAL [None]
  - BIOPSY BREAST [None]
  - INJURY [None]
